FAERS Safety Report 7005371-8 (Version None)
Quarter: 2010Q3

REPORT INFORMATION
  Report Type: 
  Country: None (occurrence: None)
  Receive Date: 20100920
  Receipt Date: 20100920
  Transmission Date: 20110219
  Serious: Yes (Other)
  Sender: FDA-Public Use
  Company Number: None

PATIENT
  Sex: Female

DRUGS (1)
  1. AVASTIN [Suspect]
     Indication: CHORIORETINAL ATROPHY
     Dosage: 1.25 MG ONCE INTRAVITREAL
     Dates: start: 20100813

REACTIONS (1)
  - UVEITIS [None]
